FAERS Safety Report 9329434 (Version 1)
Quarter: 2013Q2

REPORT INFORMATION
  Report Type: Spontaneous
  Country: US (occurrence: US)
  Receive Date: 20130604
  Receipt Date: 20130604
  Transmission Date: 20140414
  Serious: No
  Sender: FDA-Public Use
  Company Number: US-009507513-1305USA015874

PATIENT
  Age: 2 Year
  Sex: Male

DRUGS (1)
  1. CLARITIN ORAL SOLUTION [Suspect]
     Indication: PRODUCT USED FOR UNKNOWN INDICATION
     Dosage: 10 MG, ONCE
     Route: 048

REACTIONS (1)
  - Overdose [Unknown]
